FAERS Safety Report 4724969-0 (Version None)
Quarter: 2005Q3

REPORT INFORMATION
  Report Type: 
  Country: None (occurrence: None)
  Receive Date: 20050726
  Receipt Date: 20050718
  Transmission Date: 20060218
  Serious: Yes (Disabling)
  Sender: FDA-Public Use
  Company Number: GB-ROCHE-411307

PATIENT
  Age: 16 Year
  Sex: Male
  Weight: 57.2 kg

DRUGS (1)
  1. ROACCUTANE [Suspect]
     Route: 048
     Dates: end: 20030815

REACTIONS (4)
  - AGGRESSION [None]
  - DEPRESSION [None]
  - SUICIDAL IDEATION [None]
  - SUICIDE ATTEMPT [None]
